FAERS Safety Report 6635698-0 (Version None)
Quarter: 2010Q1

REPORT INFORMATION
  Report Type: 
  Country: None (occurrence: None)
  Receive Date: 20100312
  Receipt Date: 20100312
  Transmission Date: 20100710
  Serious: Yes (Hospitalization)
  Sender: FDA-Public Use
  Company Number: None

PATIENT
  Sex: Female
  Weight: 85 kg

DRUGS (3)
  1. SOLIRIS [Suspect]
     Indication: PROPHYLAXIS AGAINST TRANSPLANT REJECTION
     Dosage: 1200 MG ONCE IV
     Route: 042
     Dates: start: 20100215
  2. SOLIRIS [Suspect]
     Dosage: 600 MG TWICE IV
     Route: 042
     Dates: start: 20100216
  3. SOLIRIS [Suspect]
     Dosage: 600 MG TWICE IV
     Route: 042
     Dates: start: 20100222

REACTIONS (1)
  - WOUND INFECTION STAPHYLOCOCCAL [None]
